FAERS Safety Report 20932649 (Version 2)
Quarter: 2022Q2

REPORT INFORMATION
  Report Type: Report from Study
  Country: PT (occurrence: None)
  Receive Date: 20220608
  Receipt Date: 20220613
  Transmission Date: 20220720
  Serious: Yes (Other)
  Sender: FDA-Public Use
  Company Number: PT-Merck Healthcare KGaA-9327883

PATIENT
  Sex: Male

DRUGS (2)
  1. MAVENCLAD [Suspect]
     Active Substance: CLADRIBINE
     Indication: Multiple sclerosis
     Dosage: YEAR ONE THERAPY.
     Route: 048
     Dates: start: 20190715
  2. MAVENCLAD [Suspect]
     Active Substance: CLADRIBINE
     Dosage: YEAR TWO THERAPY.
     Route: 048
     Dates: start: 2020

REACTIONS (1)
  - Face presentation [Unknown]
